FAERS Safety Report 24940382 (Version 1)
Quarter: 2025Q1

REPORT INFORMATION
  Report Type: Spontaneous
  Country: CN (occurrence: CN)
  Receive Date: 20250207
  Receipt Date: 20250207
  Transmission Date: 20250409
  Serious: Yes (Hospitalization)
  Sender: ROCHE
  Company Number: CN-ROCHE-10000202216

PATIENT
  Age: 77 Year
  Sex: Male

DRUGS (4)
  1. MABTHERA [Suspect]
     Active Substance: RITUXIMAB
     Indication: Mantle cell lymphoma
     Route: 040
     Dates: start: 20250124, end: 20250124
  2. MABTHERA [Suspect]
     Active Substance: RITUXIMAB
     Route: 040
     Dates: start: 20250124, end: 20250124
  3. SODIUM CHLORIDE [Concomitant]
     Active Substance: SODIUM CHLORIDE
     Indication: Mantle cell lymphoma
     Route: 040
     Dates: start: 20250124, end: 20250124
  4. SODIUM CHLORIDE [Concomitant]
     Active Substance: SODIUM CHLORIDE
     Route: 040
     Dates: start: 20250124, end: 20250124

REACTIONS (2)
  - Myelosuppression [Unknown]
  - Off label use [Unknown]

NARRATIVE: CASE EVENT DATE: 20250125
